FAERS Safety Report 9638935 (Version 1)
Quarter: 2013Q4

REPORT INFORMATION
  Report Type: Spontaneous
  Country: FR (occurrence: FR)
  Receive Date: 20131022
  Receipt Date: 20131022
  Transmission Date: 20140711
  Serious: Yes (Hospitalization, Other)
  Sender: FDA-Public Use
  Company Number: FR-VERTEX PHARMACEUTICALS INC-2013-010567

PATIENT
  Sex: 0

DRUGS (8)
  1. INCIVO [Suspect]
     Indication: HEPATITIS C
     Dosage: UNK, TID
     Route: 048
  2. PEGINTERFERON ALFA-2A [Suspect]
     Indication: HEPATITIS C
     Dosage: 180 ?G, QW
  3. RIBAVIRIN [Suspect]
     Indication: HEPATITIS C
     Dosage: UNK, QD
  4. TENOFOVIR [Concomitant]
     Indication: HIV INFECTION
  5. EMTRICITABINE [Concomitant]
     Indication: HIV INFECTION
  6. EFAVIRENZ [Concomitant]
     Indication: HIV INFECTION
  7. ATAZANAVIR [Concomitant]
     Indication: HIV INFECTION
  8. RALTEGRAVIR [Concomitant]
     Indication: HIV INFECTION

REACTIONS (8)
  - Leukopenia [Unknown]
  - Infection [Unknown]
  - Anaemia [Unknown]
  - Thrombocytopenia [Unknown]
  - Psychiatric symptom [Unknown]
  - Adverse event [Unknown]
  - Off label use [Unknown]
  - Drug ineffective [Unknown]
